FAERS Safety Report 5498387-4 (Version None)
Quarter: 2007Q4

REPORT INFORMATION
  Report Type: 
  Country: None (occurrence: None)
  Receive Date: 20071024
  Receipt Date: 20070711
  Transmission Date: 20080405
  Serious: Yes (Congenital Anomaly)
  Sender: FDA-Public Use
  Company Number: 8024643

PATIENT

DRUGS (3)
  1. KEPPRA [Suspect]
     Indication: EPILEPSY
     Dosage: 2000 MG/D TRP
     Dates: start: 20070119
  2. PRENATAL VITAMINS [Concomitant]
  3. FOLIC ACID [Concomitant]

REACTIONS (2)
  - ALPHA 1 FOETOPROTEIN AMNIOTIC FLUID INCREASED [None]
  - DRUG EXPOSURE BEFORE PREGNANCY [None]
